FAERS Safety Report 7772687-7 (Version None)
Quarter: 2011Q3

REPORT INFORMATION
  Report Type: 
  Country: None (occurrence: None)
  Receive Date: 20110922
  Receipt Date: 20100902
  Transmission Date: 20111222
  Serious: No
  Sender: FDA-Public Use
  Company Number: US-ASTRAZENECA-2007UW08950

PATIENT
  Age: 510 Month
  Sex: Female
  Weight: 125 kg

DRUGS (13)
  1. SEROQUEL [Suspect]
     Route: 048
     Dates: start: 20040401, end: 20060401
  2. MIRTAZAPINE [Concomitant]
     Dates: start: 20030718
  3. RISPERDAL [Suspect]
     Dates: start: 20040401
  4. AVINZA [Concomitant]
     Dates: start: 20040601
  5. OTHER PSYCHIATRIC MEDICATION [Concomitant]
  6. RESTORIL [Concomitant]
     Indication: INSOMNIA
     Dates: start: 20040602
  7. ATIVAN [Concomitant]
     Indication: ANXIETY
     Dates: start: 20031230
  8. LIPITOR [Concomitant]
     Indication: HYPERCHOLESTEROLAEMIA
     Dates: start: 20060605
  9. SEROQUEL [Suspect]
     Indication: SLEEP DISORDER
     Route: 048
     Dates: start: 20040316
  10. PHENTERMINE [Concomitant]
     Indication: WEIGHT CONTROL
  11. LORTAB [Concomitant]
     Indication: HYPOTENSION
     Route: 048
     Dates: start: 20030520
  12. SEROQUEL [Suspect]
     Dosage: 50-100 MG
     Route: 048
     Dates: start: 20040316, end: 20060426
  13. ZYPREXA [Suspect]

REACTIONS (9)
  - DEPRESSION [None]
  - OBESITY [None]
  - TYPE 2 DIABETES MELLITUS [None]
  - DIABETES MELLITUS [None]
  - BLOOD CHOLESTEROL INCREASED [None]
  - GLUCOSE URINE PRESENT [None]
  - HYPERLIPIDAEMIA [None]
  - FALL [None]
  - PAIN IN EXTREMITY [None]
